FAERS Safety Report 6243128-6 (Version None)
Quarter: 2009Q2

REPORT INFORMATION
  Report Type: 
  Country: None (occurrence: None)
  Receive Date: 20090622
  Receipt Date: 20090622
  Transmission Date: 20091009
  Serious: Yes (Other)
  Sender: FDA-Public Use
  Company Number: None

PATIENT
  Age: 41 Year
  Sex: Male
  Weight: 131.0895 kg

DRUGS (3)
  1. ZICAM NASAL SWAB [Suspect]
     Indication: NASOPHARYNGITIS
     Dosage: 1 SWAB ONCE OR TWICE NASAL
     Route: 045
     Dates: start: 20090308, end: 20090311
  2. ZICAM COUGH MAX [Suspect]
     Indication: COUGH
     Dosage: 5 SPRAYS EVERY 6 TO 8 HOURS PO
     Route: 048
     Dates: start: 20090308, end: 20090317
  3. ZICAM COUGH MAX [Suspect]
     Indication: THROAT IRRITATION
     Dosage: 5 SPRAYS EVERY 6 TO 8 HOURS PO
     Route: 048
     Dates: start: 20090308, end: 20090317

REACTIONS (2)
  - AGEUSIA [None]
  - ANOSMIA [None]
